FAERS Safety Report 4937259-8 (Version None)
Quarter: 2006Q1

REPORT INFORMATION
  Report Type: 
  Country: None (occurrence: None)
  Receive Date: 20060307
  Receipt Date: 20060307
  Transmission Date: 20060701
  Serious: Yes (Other)
  Sender: FDA-Public Use
  Company Number: None

PATIENT
  Age: 78 Year
  Sex: Male

DRUGS (1)
  1. CYMBALTA [Suspect]
     Indication: NEURALGIA
     Dosage: ORAL;60.0 MILLIGRAM DAILY
     Route: 048
     Dates: start: 20050610, end: 20060105

REACTIONS (2)
  - FEELING ABNORMAL [None]
  - HYPERHIDROSIS [None]
